FAERS Safety Report 8375695-0 (Version None)
Quarter: 2012Q2

REPORT INFORMATION
  Report Type: 
  Country: None (occurrence: None)
  Receive Date: 20120522
  Receipt Date: 20120516
  Transmission Date: 20120825
  Serious: No
  Sender: FDA-Public Use
  Company Number: US-PFIZER INC-2012119602

PATIENT
  Sex: Female
  Weight: 46.712 kg

DRUGS (1)
  1. GENOTROPIN [Suspect]
     Indication: HYPOPITUITARISM
     Dosage: 1.2 MG, DAILY
     Dates: start: 20120401

REACTIONS (7)
  - DIZZINESS [None]
  - HEADACHE [None]
  - LIMB DISCOMFORT [None]
  - PAIN IN EXTREMITY [None]
  - HYPOAESTHESIA [None]
  - FEELING HOT [None]
  - MUSCULAR WEAKNESS [None]
